FAERS Safety Report 7897982-2 (Version None)
Quarter: 2011Q4

REPORT INFORMATION
  Report Type: 
  Country: None (occurrence: None)
  Receive Date: 20111107
  Receipt Date: 20111107
  Transmission Date: 20120403
  Serious: Yes (Other)
  Sender: FDA-Public Use
  Company Number: None

PATIENT
  Age: 42 Year
  Sex: Male
  Weight: 74.842 kg

DRUGS (1)
  1. AVONEX [Suspect]
     Indication: MULTIPLE SCLEROSIS
     Dosage: 30 MCG/0.5ML
     Route: 030
     Dates: start: 20110801, end: 20111007

REACTIONS (3)
  - INFLUENZA LIKE ILLNESS [None]
  - PRURITUS [None]
  - SCAR [None]
